FAERS Safety Report 26181510 (Version 1)
Quarter: 2025Q4

REPORT INFORMATION
  Report Type: Spontaneous
  Country: US (occurrence: US)
  Receive Date: 20251221
  Receipt Date: 20251221
  Transmission Date: 20260118
  Serious: Yes (Other)
  Sender: AMGEN
  Company Number: US-AMGEN-USASP2025245905

PATIENT
  Age: 31 Year
  Sex: Male

DRUGS (5)
  1. PREDNISONE [Suspect]
     Active Substance: PREDNISONE
     Indication: Myalgia
     Dosage: 60 MILLIGRAM
     Route: 048
  2. PREDNISONE [Suspect]
     Active Substance: PREDNISONE
     Dosage: 1 MILLIGRAM/KILOGRAM, QD, (PROLONGED TAPER)
     Route: 048
  3. PENICILLIN G [Concomitant]
     Active Substance: PENICILLIN G
     Route: 040
  4. METHYLPREDNISOLONE [Concomitant]
     Active Substance: METHYLPREDNISOLONE
     Dosage: 250 MILLIGRAM
     Route: 040
  5. METHYLPREDNISOLONE [Concomitant]
     Active Substance: METHYLPREDNISOLONE
     Dosage: 1 GRAM, QD
     Route: 040

REACTIONS (5)
  - Deafness bilateral [Unknown]
  - Paraplegia [Unknown]
  - Asthenia [Unknown]
  - Bladder dysfunction [Unknown]
  - Functional gastrointestinal disorder [Unknown]
